FAERS Safety Report 5700377-0 (Version None)
Quarter: 2008Q2

REPORT INFORMATION
  Report Type: 
  Country: None (occurrence: None)
  Receive Date: 20080410
  Receipt Date: 20080401
  Transmission Date: 20081010
  Serious: Yes (Death)
  Sender: FDA-Public Use
  Company Number: GB-ELI_LILLY_AND_COMPANY-GB200804000538

PATIENT
  Age: 42 Year
  Sex: Male

DRUGS (1)
  1. XIGRIS [Suspect]
     Indication: ABDOMINAL SEPSIS
     Dosage: UNK, UNKNOWN
     Route: 042

REACTIONS (2)
  - DEATH [None]
  - SKIN REACTION [None]
